FAERS Safety Report 12558267 (Version 4)
Quarter: 2016Q3

REPORT INFORMATION
  Report Type: Spontaneous
  Country: US (occurrence: US)
  Receive Date: 20160714
  Receipt Date: 20160826
  Transmission Date: 20161109
  Serious: Yes (Death, Life-Threatening, Hospitalization, Other)
  Sender: FDA-Public Use
  Company Number: US-PFIZER INC-US-WYE-H01420507

PATIENT
  Age: 12 Year
  Sex: Male
  Weight: 68 kg

DRUGS (25)
  1. DIAMOX SEQUELS [Suspect]
     Active Substance: ACETAZOLAMIDE
     Indication: PYREXIA
     Dosage: UNK
  2. IBUPROFEN. [Suspect]
     Active Substance: IBUPROFEN
     Indication: PYREXIA
     Dosage: UNK
  3. CEFTAZIDIME. [Suspect]
     Active Substance: CEFTAZIDIME
     Dosage: UNK
  4. ALBUTEROL SULFATE. [Suspect]
     Active Substance: ALBUTEROL SULFATE
     Indication: ASTHMA
     Dosage: 10 MG, UNK
     Route: 055
     Dates: start: 199609
  5. DOBUTAMINE [Concomitant]
     Active Substance: DOBUTAMINE\DOBUTAMINE HYDROCHLORIDE
     Dosage: UNK
     Route: 065
  6. MAGNESIUM SULFATE. [Suspect]
     Active Substance: MAGNESIUM SULFATE
     Dosage: UNK
     Route: 041
  7. CEFUROXIME. [Suspect]
     Active Substance: CEFUROXIME
     Dosage: UNK
  8. FENTANYL. [Suspect]
     Active Substance: FENTANYL
     Dosage: UNK
     Route: 065
  9. SUCRALFATE. [Suspect]
     Active Substance: SUCRALFATE
     Dosage: UNK
  10. TERBUTALINE [Suspect]
     Active Substance: TERBUTALINE
     Dosage: UNK, (1 MCG/KG/MIN.)
     Route: 042
     Dates: start: 1997
  11. LASIX [Suspect]
     Active Substance: FUROSEMIDE
     Dosage: UNK
  12. DOPAMINE [Concomitant]
     Active Substance: DOPAMINE\DOPAMINE HYDROCHLORIDE
     Dosage: UNK, (20MCG/KG/MIN)
     Route: 065
  13. PREDNISONE. [Concomitant]
     Active Substance: PREDNISONE
     Dosage: UNK
     Route: 065
  14. PROVENTIL [Suspect]
     Active Substance: ALBUTEROL
     Dosage: UNK
     Dates: start: 1989
  15. OXACILLIN [Concomitant]
     Active Substance: OXACILLIN SODIUM
     Dosage: UNK
     Route: 065
  16. AZMACORT [Concomitant]
     Active Substance: TRIAMCINOLONE ACETONIDE
     Dosage: UNK
     Route: 065
  17. ATROVENT [Concomitant]
     Active Substance: IPRATROPIUM BROMIDE
     Dosage: UNK
     Route: 065
  18. THEO-DUR [Concomitant]
     Active Substance: THEOPHYLLINE ANHYDROUS
  19. PROVENTIL [Suspect]
     Active Substance: ALBUTEROL
     Indication: ASTHMA
     Dosage: UNK
     Dates: start: 199704
  20. TYLENOL [Suspect]
     Active Substance: ACETAMINOPHEN
     Dosage: UNK
  21. RANITIDINE. [Concomitant]
     Active Substance: RANITIDINE
     Dosage: UNK
     Route: 065
  22. NASACORT [Concomitant]
     Active Substance: TRIAMCINOLONE ACETONIDE
     Dosage: UNK
     Route: 065
  23. SOLU-MEDROL [Suspect]
     Active Substance: METHYLPREDNISOLONE SODIUM SUCCINATE
     Indication: ASTHMA
     Dosage: 240 MG, DAILY
     Route: 042
     Dates: start: 19970402
  24. SOLU-MEDROL [Suspect]
     Active Substance: METHYLPREDNISOLONE SODIUM SUCCINATE
     Dosage: 750 MG, DAILY
     Route: 042
  25. EPINEPHRINE. [Concomitant]
     Active Substance: EPINEPHRINE
     Dosage: UNK
     Route: 065

REACTIONS (20)
  - Multiple organ dysfunction syndrome [Fatal]
  - Peritoneal haemorrhage [Fatal]
  - Renal failure [Fatal]
  - Drug prescribing error [Fatal]
  - Respiratory failure [Fatal]
  - Septic shock [Fatal]
  - Renal tubular necrosis [Fatal]
  - Duodenal ulcer haemorrhage [Fatal]
  - Thrombosis [Fatal]
  - Pulmonary haemorrhage [Fatal]
  - Hepatic necrosis [Fatal]
  - Cardiogenic shock [Fatal]
  - Gastrointestinal necrosis [Fatal]
  - Lactic acidosis [Fatal]
  - Status asthmaticus [Fatal]
  - Hypotension [Fatal]
  - Hepatic failure [Fatal]
  - Disseminated intravascular coagulation [Fatal]
  - Retroperitoneal haemorrhage [Fatal]
  - Ileus paralytic [Fatal]

NARRATIVE: CASE EVENT DATE: 19970401
